FAERS Safety Report 7671831-X (Version None)
Quarter: 2011Q3

REPORT INFORMATION
  Report Type: 
  Country: None (occurrence: None)
  Receive Date: 20110809
  Receipt Date: 20110608
  Transmission Date: 20111222
  Serious: Yes (Hospitalization)
  Sender: FDA-Public Use
  Company Number: GB-BAYER-201047572GPV

PATIENT
  Age: 78 Year
  Sex: Male
  Weight: 97.7 kg

DRUGS (42)
  1. DERMATOLOGICALS [Concomitant]
     Dates: start: 20100701
  2. PERINDOPRIL [Concomitant]
     Indication: POSTOPERATIVE CARE
     Dosage: 2 MG (DAILY DOSE), ,
     Dates: start: 20080601
  3. SODIUM CROMOGLICATE [Concomitant]
     Indication: MACULAR DEGENERATION
     Dosage: 2 % (DAILY DOSE), ,
     Dates: start: 19700101
  4. CHLORHEXIDINE GLUCONATE [Concomitant]
     Indication: OROPHARYNGEAL PAIN
     Dates: start: 20100521
  5. EMOLLIENTS AND PROTECTIVES [Concomitant]
     Indication: RASH
     Dates: start: 20100506
  6. RANITIDINE HCL [Concomitant]
     Indication: PROPHYLAXIS
     Dosage: 150 MG (DAILY DOSE), ,
     Dates: start: 20100528
  7. CORSODYL [Concomitant]
     Indication: GINGIVITIS
     Dates: start: 20100915
  8. CLENIL [Concomitant]
     Indication: ASTHMA
     Dosage: 100 MG (DAILY DOSE), ,
     Dates: start: 19950101
  9. DIPROBASE [Concomitant]
     Indication: RASH ERYTHEMATOUS
     Dates: start: 20100506
  10. EZETIMIBE [Concomitant]
     Indication: POSTOPERATIVE CARE
     Dosage: 10 MG (DAILY DOSE), ,
     Dates: start: 20080601
  11. FOLIC ACID [Concomitant]
     Indication: ANAEMIA
     Dosage: 5 MG (DAILY DOSE), ,
     Dates: start: 20070101
  12. HYPROMELLOSE [Concomitant]
     Indication: AGE-RELATED MACULAR DEGENERATION
     Dosage: 0.3 % (DAILY DOSE), ,
     Dates: start: 20020101
  13. ALBUTEROL [Concomitant]
     Indication: ASTHMA
     Dosage: 2 PUFF(S) (DAILY DOSE), , RESPIRATORY
     Route: 055
     Dates: start: 19950101
  14. AMITRIPTYLINE HCL [Concomitant]
     Indication: PRURITUS
     Dosage: 10 MG (DAILY DOSE), ,
     Dates: start: 20050101
  15. EMOLLIENTS AND PROTECTIVES [Concomitant]
     Dates: start: 20100701
  16. FUROSEMIDE [Concomitant]
     Indication: POSTOPERATIVE CARE
     Dosage: 40 MG (DAILY DOSE), ,
     Dates: start: 20080601
  17. NASONEX [Concomitant]
     Indication: ASTHMA
     Dosage: 50 MG (DAILY DOSE), , NASAL
     Route: 045
     Dates: start: 20020101
  18. SIMVASTATIN [Concomitant]
     Indication: POSTOPERATIVE CARE
     Dosage: 20 MG (DAILY DOSE), ,
     Dates: start: 20080601
  19. DERMOL [BENZALK CHLORIDE,CHLORHEXID HCL,ISOPROPYL MYRISTATE,PARAFF [Concomitant]
     Indication: DRY SKIN
     Dates: start: 20100701
  20. ORALPAEDON [GLUCOSE,HERBAL EXTRACT NOS,POTASSIUM BICARBONATE,SODIU [Concomitant]
     Dates: start: 20101001
  21. LOPERAMIDE HCL [Concomitant]
     Indication: DIARRHOEA
     Dosage: 2 MG (DAILY DOSE), ,
     Dates: start: 20101001
  22. DIORALYTE [Concomitant]
     Indication: DIARRHOEA
     Dates: start: 20101001
  23. AMLODIPINE [Concomitant]
     Indication: POSTOPERATIVE CARE
     Dosage: 5 MG (DAILY DOSE), ,
     Dates: start: 20080101
  24. EURAX [Concomitant]
     Indication: RASH
     Dates: start: 20100506
  25. EURAX [Concomitant]
     Indication: DRY SKIN
     Dates: start: 20100521
  26. DERMATOLOGICALS [Concomitant]
     Indication: DRY SKIN
     Dosage: USE AS WASH
     Dates: start: 20070101
  27. CO-DYDRAMOL [Concomitant]
     Indication: ARTHRITIS
     Dosage: 10 X 500MG
     Dates: start: 20070101
  28. GLUCOSAMINE [Concomitant]
     Indication: ARTHRITIS
     Dosage: 1000 MG (DAILY DOSE), ,
     Dates: start: 20070101
  29. BLINDED SORAFENIB (RAF KINASE INHIBITOR) [Suspect]
     Indication: HEPATIC NEOPLASM MALIGNANT
     Dosage: 150 MG (DAILY DOSE), QD, ORAL
     Route: 048
     Dates: start: 20100430, end: 20101117
  30. SORAFENIB [Suspect]
     Indication: HEPATIC NEOPLASM MALIGNANT
     Dosage: 800 MG (DAILY DOSE), BID, ORAL
     Route: 048
     Dates: start: 20100430, end: 20101117
  31. CHLORHEXIDINE GLUCONATE [Concomitant]
     Indication: MOUTH ULCERATION
  32. EMOLLIENTS AND PROTECTIVES [Concomitant]
  33. FLUCLOX [Concomitant]
     Indication: SKIN INFECTION
     Dosage: 1000 MG (DAILY DOSE), ,
     Dates: start: 20100625, end: 20100701
  34. XYLOCAINE W/ EPINEPHRENE [Concomitant]
     Indication: BIOPSY SKIN
     Dates: start: 20100701, end: 20100701
  35. XYLOCAINE W/ EPINEPHRENE [Concomitant]
     Dates: start: 20100818, end: 20100818
  36. VITAMIN B12 TEIKOK [Concomitant]
     Indication: PRODUCT USED FOR UNKNOWN INDICATION
     Dosage: 1 TABLET
     Dates: start: 20090501
  37. ALLOPURINOL [Concomitant]
     Indication: GOUT
     Dosage: 100 MG (DAILY DOSE), ,
     Dates: start: 19700101
  38. ASPIRIN [Concomitant]
     Indication: POSTOPERATIVE CARE
     Dosage: GASTRO RESISTANT
     Dates: start: 20080601
  39. TAMSULOSIN HCL [Concomitant]
     Indication: URINARY RETENTION
     Dosage: 400 MG (DAILY DOSE), ,
     Dates: start: 20070101
  40. FLUOXETINE [Concomitant]
     Indication: DEPRESSION
     Dosage: 20 MG (DAILY DOSE), ,
     Dates: start: 20080601
  41. CHLORPHENIRAMINE MALEATE [Concomitant]
     Indication: PRURITUS
     Dosage: 24 MG (DAILY DOSE), ,
     Dates: start: 20100506, end: 20100513
  42. EURAX [Concomitant]

REACTIONS (2)
  - HAEMOGLOBIN DECREASED [None]
  - LETHARGY [None]
